FAERS Safety Report 8923654 (Version 1)
Quarter: 2012Q4

REPORT INFORMATION
  Report Type: Spontaneous
  Country: JP (occurrence: None)
  Receive Date: 20121109
  Receipt Date: 20121109
  Transmission Date: 20130627
  Serious: Yes (Hospitalization)
  Sender: FDA-Public Use
  Company Number: 2012S1000052

PATIENT
  Age: 38 Year
  Sex: Male
  Weight: 100 kg

DRUGS (5)
  1. DAPTOMYCIN [Suspect]
     Indication: STAPHYLOCOCCAL INFECTION
     Route: 042
     Dates: start: 20111212, end: 20111223
  2. THERAPEUTIC [Concomitant]
  3. METFORMIN HYDROCHLORIDE [Concomitant]
  4. LIVA.LO [Concomitant]
  5. RIFAMPICIN [Concomitant]

REACTIONS (6)
  - Myalgia [None]
  - Blood creatine phosphokinase increased [None]
  - Overdose [None]
  - Hepatic function abnormal [None]
  - Aspartate aminotransferase increased [None]
  - Alanine aminotransferase increased [None]
